FAERS Safety Report 12532123 (Version 1)
Quarter: 2016Q3

REPORT INFORMATION
  Report Type: Spontaneous
  Country: US (occurrence: US)
  Receive Date: 20160706
  Receipt Date: 20160706
  Transmission Date: 20161109
  Serious: Yes (Death, Other)
  Sender: FDA-Public Use
  Company Number: US-ACTAVIS-2016-14614

PATIENT
  Age: 17 Year
  Sex: Female

DRUGS (1)
  1. FENTANYL TRANSDERMAL SYSTEM [Suspect]
     Active Substance: FENTANYL
     Indication: PAIN MANAGEMENT
     Dosage: 1 DF, SINGLE
     Route: 042

REACTIONS (3)
  - Brain injury [Not Recovered/Not Resolved]
  - Cardiac arrest [Fatal]
  - Respiratory arrest [Not Recovered/Not Resolved]
